FAERS Safety Report 7315548-X (Version None)
Quarter: 2011Q1

REPORT INFORMATION
  Report Type: 
  Country: None (occurrence: None)
  Receive Date: 20110225
  Receipt Date: 20110215
  Transmission Date: 20110831
  Serious: Yes (Hospitalization, Other)
  Sender: FDA-Public Use
  Company Number: ES-JNJFOC-20110205664

PATIENT
  Age: 59 Year
  Sex: Male
  Weight: 88 kg

DRUGS (7)
  1. ARAVA [Concomitant]
     Indication: RHEUMATOID ARTHRITIS
  2. CEMIDON [Concomitant]
     Indication: LATENT TUBERCULOSIS
  3. OMEPRAZOLE [Concomitant]
     Indication: GASTROINTESTINAL DISORDER THERAPY
  4. MASTICAL D [Concomitant]
     Indication: PROPHYLAXIS
  5. TIRODRIL [Concomitant]
     Indication: HYPERTHYROIDISM
  6. GOLIMUMAB [Suspect]
     Indication: PRODUCT USED FOR UNKNOWN INDICATION
     Route: 058
  7. URBASON [Concomitant]
     Indication: RHEUMATOID ARTHRITIS

REACTIONS (1)
  - SKIN LESION [None]
